FAERS Safety Report 21690042 (Version 2)
Quarter: 2023Q1

REPORT INFORMATION
  Report Type: Report from Study
  Country: CA (occurrence: CA)
  Receive Date: 20221206
  Receipt Date: 20230320
  Transmission Date: 20230417
  Serious: Yes (Death, Other)
  Sender: FDA-Public Use
  Company Number: CA-002147023-PHHY2017CA187517

PATIENT

DRUGS (6)
  1. RUXOLITINIB [Suspect]
     Active Substance: RUXOLITINIB
     Indication: Polycythaemia vera
     Dosage: 10 MG, BID (10 MG STRENGTH)
     Route: 048
     Dates: start: 20171206
  2. RUXOLITINIB [Suspect]
     Active Substance: RUXOLITINIB
     Dosage: 5 MG, BID
     Route: 048
  3. RUXOLITINIB [Suspect]
     Active Substance: RUXOLITINIB
     Dosage: 20 MG, BID
     Route: 048
  4. RUXOLITINIB [Suspect]
     Active Substance: RUXOLITINIB
     Dosage: 10 MG, BID
     Route: 048
     Dates: start: 20171209
  5. RUXOLITINIB [Suspect]
     Active Substance: RUXOLITINIB
     Dosage: 10 MG, QD (IN THIS MORNING)
     Route: 048
  6. RUXOLITINIB [Suspect]
     Active Substance: RUXOLITINIB
     Dosage: 25 MG, BID
     Route: 048

REACTIONS (41)
  - Abdominal distension [Unknown]
  - Dementia Alzheimer^s type [Unknown]
  - Anaemia [Unknown]
  - Full blood count abnormal [Unknown]
  - Peripheral vascular disorder [Unknown]
  - Confusional state [Unknown]
  - Constipation [Recovered/Resolved]
  - Death [Fatal]
  - Visual impairment [Unknown]
  - Fatigue [Unknown]
  - Aphasia [Unknown]
  - Weight increased [Unknown]
  - Flatulence [Unknown]
  - Haematocrit increased [Unknown]
  - Haemoglobin decreased [Unknown]
  - Incorrect dose administered [Unknown]
  - Bradyphrenia [Unknown]
  - Drug ineffective [Unknown]
  - Headache [Unknown]
  - Hypoaesthesia [Unknown]
  - Limb injury [Unknown]
  - Immune system disorder [Unknown]
  - Muscle spasms [Not Recovered/Not Resolved]
  - Memory impairment [Not Recovered/Not Resolved]
  - Mental disorder [Unknown]
  - Movement disorder [Unknown]
  - Epistaxis [Unknown]
  - Malaise [Unknown]
  - Faeces discoloured [Unknown]
  - Platelet count decreased [Unknown]
  - Polyp [Unknown]
  - Nightmare [Unknown]
  - Illness [Unknown]
  - Abdominal pain [Unknown]
  - Splenomegaly [Unknown]
  - Stress [Unknown]
  - Pain in extremity [Unknown]
  - Peripheral swelling [Unknown]
  - Erythema [Unknown]
  - Inappropriate schedule of product administration [Unknown]
  - Pollakiuria [Unknown]
